FAERS Safety Report 4692166-3 (Version None)
Quarter: 2005Q2

REPORT INFORMATION
  Report Type: 
  Country: None (occurrence: None)
  Receive Date: 20050614
  Receipt Date: 20050531
  Transmission Date: 20051028
  Serious: Yes (Hospitalization)
  Sender: FDA-Public Use
  Company Number: S05-FRA-02117-01

PATIENT
  Age: 82 Year
  Sex: Female

DRUGS (6)
  1. SEROPRAM (CITALOPRAM HYDROBROMIDE) [Suspect]
     Dosage: 0.5 QD PO
     Route: 048
     Dates: start: 20050410, end: 20050414
  2. ALTIZIDE W/SPIRONOLACTONE [Suspect]
     Dosage: 1 QD PO
     Route: 048
     Dates: end: 20050414
  3. DIGOXIN [Suspect]
     Dosage: 1 QD PO
     Route: 048
     Dates: end: 20050414
  4. FOSAMAX [Suspect]
     Dates: end: 20050414
  5. OMEPRAZOLE [Suspect]
     Dosage: 20 MG QD PO
     Route: 048
     Dates: end: 20050414
  6. CACIT [Suspect]
     Dosage: 1000 MG QD PO
     Route: 048
     Dates: end: 20050414

REACTIONS (2)
  - HYPOKALAEMIA [None]
  - HYPONATRAEMIA [None]
